FAERS Safety Report 10509026 (Version 1)
Quarter: 2014Q4

REPORT INFORMATION
  Report Type: Spontaneous
  Country: US (occurrence: US)
  Receive Date: 20141009
  Receipt Date: 20141009
  Transmission Date: 20150528
  Serious: Yes (Hospitalization)
  Sender: FDA-Public Use
  Company Number: US-B.I. PHARMACEUTICALS,INC./RIDGEFIELD-2014-BI-47784BP

PATIENT
  Age: 84 Year
  Sex: Female
  Weight: 58.63 kg

DRUGS (6)
  1. LISINOPRIL. [Concomitant]
     Active Substance: LISINOPRIL
     Indication: BLOOD PRESSURE
     Route: 065
  2. MOBIC [Suspect]
     Active Substance: MELOXICAM
     Indication: PAIN
     Dosage: 1800 MG
     Route: 065
  3. UNSPECIFIED STEROIDS [Concomitant]
     Active Substance: UNSPECIFIED INGREDIENT
     Indication: BACK PAIN
     Route: 065
  4. PRILOSEC [Concomitant]
     Active Substance: OMEPRAZOLE MAGNESIUM
     Indication: PRODUCT USED FOR UNKNOWN INDICATION
     Route: 065
  5. AROMASIN [Suspect]
     Active Substance: EXEMESTANE
     Indication: BREAST CANCER
     Dosage: 25 MG
     Route: 048
     Dates: start: 2009
  6. CYMBALTA [Concomitant]
     Active Substance: DULOXETINE HYDROCHLORIDE
     Indication: PRODUCT USED FOR UNKNOWN INDICATION
     Route: 065

REACTIONS (4)
  - Cystitis [Unknown]
  - Cardiac failure [Unknown]
  - Chest pain [Unknown]
  - Overdose [Unknown]

NARRATIVE: CASE EVENT DATE: 201308
